FAERS Safety Report 4342845-2 (Version None)
Quarter: 2004Q2

REPORT INFORMATION
  Report Type: 
  Country: None (occurrence: None)
  Receive Date: 20040416
  Receipt Date: 20040408
  Transmission Date: 20050107
  Serious: Yes (Hospitalization, Other)
  Sender: FDA-Public Use
  Company Number: 200410784BCC

PATIENT
  Age: 54 Year
  Sex: Male
  Weight: 113.3993 kg

DRUGS (6)
  1. ALEVE [Suspect]
     Indication: ARTHRITIS
     Dosage: 440 MG, HS, ORAL
     Route: 048
  2. ALEVE [Suspect]
     Indication: BACK PAIN
     Dosage: 440 MG, HS, ORAL
     Route: 048
  3. LISINOPRIL [Concomitant]
  4. NORVASC [Concomitant]
  5. AVANDIA [Concomitant]
  6. METFORMIN HCL [Concomitant]

REACTIONS (14)
  - AMNESIA [None]
  - ARTERIAL DISORDER [None]
  - ARTERIAL HAEMORRHAGE [None]
  - BLOOD PRESSURE DECREASED [None]
  - CARDIAC FAILURE [None]
  - CIRCULATORY COLLAPSE [None]
  - HAEMATOCHEZIA [None]
  - HAEMORRHAGE [None]
  - ORGAN FAILURE [None]
  - PNEUMONIA [None]
  - PULMONARY THROMBOSIS [None]
  - STAPHYLOCOCCAL INFECTION [None]
  - THROMBOSIS [None]
  - ULCER [None]
